FAERS Safety Report 21224711 (Version 1)
Quarter: 2022Q3

REPORT INFORMATION
  Report Type: Spontaneous
  Country: US (occurrence: US)
  Receive Date: 20220817
  Receipt Date: 20220817
  Transmission Date: 20221027
  Serious: Yes (Other)
  Sender: FDA-Public Use
  Company Number: US-OTSUKA-2021_038341

PATIENT

DRUGS (1)
  1. ABILIFY [Suspect]
     Active Substance: ARIPIPRAZOLE
     Indication: Product used for unknown indication
     Dosage: UNK
     Route: 065

REACTIONS (6)
  - Suicidal ideation [Unknown]
  - Catastrophic reaction [Unknown]
  - Morbid thoughts [Unknown]
  - Dysphemia [Unknown]
  - Libido disorder [Unknown]
  - Anxiety [Unknown]

NARRATIVE: CASE EVENT DATE: 20211018
